FAERS Safety Report 5819899-7 (Version None)
Quarter: 2008Q3

REPORT INFORMATION
  Report Type: 
  Country: None (occurrence: None)
  Receive Date: 20080717
  Receipt Date: 20080710
  Transmission Date: 20090109
  Serious: Yes (Hospitalization)
  Sender: FDA-Public Use
  Company Number: 2008AL008152

PATIENT
  Age: 77 Year
  Sex: Female
  Weight: 62 kg

DRUGS (14)
  1. DICLOFENAC SODIUM [Suspect]
     Indication: BACK PAIN
     Dosage: 25 MG;TID;
  2. DIGOXIN [Suspect]
     Indication: ATRIAL FIBRILLATION
     Dosage: 0.25 MG;QD;PO
     Route: 048
  3. LEVOTHYROXINE SODIUM [Concomitant]
  4. GLIBENCLAMIDE [Concomitant]
  5. FUROSEMIDE [Concomitant]
  6. CARBASALATE CALCIUM [Concomitant]
  7. DIPYRIDAMOLE [Concomitant]
  8. BETAMETHASONE [Concomitant]
  9. ALBUTEROL [Concomitant]
  10. BECLOMETHASONE INHALATION [Concomitant]
  11. DEXCLOMETHASONE NASAL SPRAY [Concomitant]
  12. FLUNARIZINE [Concomitant]
  13. VITAMIN B COMPLEX [Concomitant]
  14. HYDROQUININE [Concomitant]

REACTIONS (11)
  - ANOREXIA [None]
  - ATRIAL FIBRILLATION [None]
  - BUNDLE BRANCH BLOCK LEFT [None]
  - CARDIOACTIVE DRUG LEVEL INCREASED [None]
  - CONSTIPATION [None]
  - CREATININE RENAL CLEARANCE DECREASED [None]
  - GASTROINTESTINAL DISORDER [None]
  - HEART RATE IRREGULAR [None]
  - NAUSEA [None]
  - VENTRICULAR EXTRASYSTOLES [None]
  - VOMITING [None]
